FAERS Safety Report 22389438 (Version 1)
Quarter: 2023Q2

REPORT INFORMATION
  Report Type: Spontaneous
  Country: ZA (occurrence: ZA)
  Receive Date: 20230531
  Receipt Date: 20230531
  Transmission Date: 20230722
  Serious: Yes (Other)
  Sender: FDA-Public Use
  Company Number: ZA-PFIZER INC-202200787871

PATIENT
  Age: 71 Year
  Sex: Male
  Weight: 84 kg

DRUGS (10)
  1. METHOTREXATE SODIUM [Suspect]
     Active Substance: METHOTREXATE SODIUM
     Indication: Rheumatoid arthritis
     Dosage: 20 MG, WEEKLY
     Dates: start: 2009
  2. METHOTREXATE SODIUM [Suspect]
     Active Substance: METHOTREXATE SODIUM
     Dosage: 10 MG
     Dates: start: 2010
  3. METHOTREXATE SODIUM [Suspect]
     Active Substance: METHOTREXATE SODIUM
     Dosage: 5 DF, WEEKLY
  4. ENBREL [Suspect]
     Active Substance: ETANERCEPT
     Indication: Rheumatoid arthritis
     Dosage: 50 MG
  5. SULFASALAZINE [Concomitant]
     Active Substance: SULFASALAZINE
     Dosage: 1 G, 2X/DAY
     Dates: start: 2009
  6. CHLOROQUINE [Concomitant]
     Active Substance: CHLOROQUINE
     Dosage: UNK
     Dates: start: 2009
  7. PREDNISONE [Concomitant]
     Active Substance: PREDNISONE
     Dosage: 5 MG, DAILY
     Dates: start: 2009
  8. PREDNISONE [Concomitant]
     Active Substance: PREDNISONE
     Dosage: 2.5 MG
  9. ARAVA [Concomitant]
     Active Substance: LEFLUNOMIDE
     Dosage: UNK
  10. FOLIC ACID [Concomitant]
     Active Substance: FOLIC ACID
     Dosage: 5 MG

REACTIONS (5)
  - Knee arthroplasty [Unknown]
  - Hip arthroplasty [Unknown]
  - Overweight [Unknown]
  - Osteoarthritis [Unknown]
  - Intervertebral disc disorder [Unknown]

NARRATIVE: CASE EVENT DATE: 20220601
